FAERS Safety Report 9296125 (Version 1)
Quarter: 2013Q2

REPORT INFORMATION
  Report Type: Spontaneous
  Country: FR (occurrence: FR)
  Receive Date: 20130517
  Receipt Date: 20130517
  Transmission Date: 20140414
  Serious: Yes (Hospitalization)
  Sender: FDA-Public Use
  Company Number: JP-ASTRAZENECA-2013SE33818

PATIENT
  Age: 79 Year
  Sex: Female

DRUGS (8)
  1. KENZEN [Suspect]
     Indication: HYPERTENSION
     Route: 048
     Dates: end: 20130105
  2. FLUDEX [Suspect]
     Indication: HYPERTENSION
     Route: 048
     Dates: end: 20130105
  3. TEMERIT [Concomitant]
     Indication: HYPERTENSION
     Route: 065
  4. HYPERIUM [Concomitant]
     Indication: HYPERTENSION
     Route: 065
  5. TAHOR [Concomitant]
     Indication: PRODUCT USED FOR UNKNOWN INDICATION
     Route: 048
  6. FORLAX [Concomitant]
     Indication: PRODUCT USED FOR UNKNOWN INDICATION
     Route: 065
  7. URBANYL [Concomitant]
     Indication: PRODUCT USED FOR UNKNOWN INDICATION
     Route: 065
  8. IMOVANE [Concomitant]
     Indication: PRODUCT USED FOR UNKNOWN INDICATION
     Route: 048

REACTIONS (6)
  - Fall [Recovered/Resolved]
  - Loss of consciousness [Recovered/Resolved]
  - Grand mal convulsion [Recovered/Resolved]
  - Psychomotor retardation [Recovered/Resolved]
  - Myoclonus [Recovered/Resolved]
  - Hyponatraemia [Recovering/Resolving]
